FAERS Safety Report 7393815-1 (Version None)
Quarter: 2011Q2

REPORT INFORMATION
  Report Type: 
  Country: None (occurrence: None)
  Receive Date: 20110405
  Receipt Date: 20110329
  Transmission Date: 20111010
  Serious: Yes (Other)
  Sender: FDA-Public Use
  Company Number: DE-SANOFI-AVENTIS-2010SA040610

PATIENT
  Sex: Female
  Weight: 60 kg

DRUGS (4)
  1. COLECALCIFEROL [Concomitant]
     Indication: OSTEOPOROSIS
     Route: 048
     Dates: start: 20070101
  2. JODTHYROX [Concomitant]
     Route: 048
     Dates: start: 20100101
  3. ARAVA [Suspect]
     Route: 048
     Dates: end: 20100101
  4. DECORTIN [Concomitant]
     Route: 048
     Dates: start: 20070101

REACTIONS (2)
  - DRUG EXPOSURE BEFORE PREGNANCY [None]
  - CAESAREAN SECTION [None]
